FAERS Safety Report 16336545 (Version 1)
Quarter: 2019Q2

REPORT INFORMATION
  Report Type: Spontaneous
  Country: US (occurrence: US)
  Receive Date: 20190520
  Receipt Date: 20190520
  Transmission Date: 20190711
  Serious: Yes (Disabling, Other)
  Sender: FDA-Public Use
  Company Number: None

PATIENT
  Age: 27 Year
  Sex: Female
  Weight: 99 kg

DRUGS (1)
  1. WAL-ZYR (CETIRIZINE HYDROCHLORIDE) [Suspect]
     Active Substance: CETIRIZINE HYDROCHLORIDE
     Indication: SEASONAL ALLERGY
     Dosage: ?          QUANTITY:30 TABLET(S);?
     Route: 048
     Dates: start: 20140807, end: 20190520

REACTIONS (11)
  - Nausea [None]
  - Weight increased [None]
  - Histamine intolerance [None]
  - Drug withdrawal syndrome [None]
  - Immunodeficiency [None]
  - Palpitations [None]
  - Scar [None]
  - Pruritus generalised [None]
  - Renal disorder [None]
  - Alopecia [None]
  - Anxiety [None]

NARRATIVE: CASE EVENT DATE: 20190107
